FAERS Safety Report 6371213-7 (Version None)
Quarter: 2009Q3

REPORT INFORMATION
  Report Type: 
  Country: None (occurrence: None)
  Receive Date: 20090923
  Receipt Date: 20071217
  Transmission Date: 20100115
  Serious: No
  Sender: FDA-Public Use
  Company Number: US-ASTRAZENECA-2006UW27923

PATIENT
  Age: 16427 Day
  Sex: Male
  Weight: 79.8 kg

DRUGS (18)
  1. SEROQUEL [Suspect]
     Indication: ANXIETY
     Dosage: 1 TO 3 TIMES DAILY
     Route: 048
     Dates: start: 20000601, end: 20050101
  2. SEROQUEL [Suspect]
     Indication: DEPRESSION
     Dosage: 1 TO 3 TIMES DAILY
     Route: 048
     Dates: start: 20000601, end: 20050101
  3. SEROQUEL [Suspect]
     Route: 048
     Dates: start: 20031119
  4. SEROQUEL [Suspect]
     Route: 048
     Dates: start: 20031119
  5. GEODON [Concomitant]
  6. GLUCOTROL [Concomitant]
     Route: 048
     Dates: start: 20020221
  7. PRILOSEC [Concomitant]
     Dates: start: 20031119
  8. TEMAZEPAM [Concomitant]
     Dosage: 15-MG,1-2 CAPSULE AT NIGHT PRN
     Dates: start: 20031119
  9. VICODIN [Concomitant]
     Dosage: 5/500, ONE TAB PO BID, PRN
     Dates: start: 20020730
  10. DARVOCET [Concomitant]
     Indication: HEADACHE
     Dosage: 100-650 MG 1 TO 2 EVERY SIX HOURS, PRN
     Dates: start: 20020221
  11. XANAX [Concomitant]
     Dosage: 1 MG EVERY SIX HOURS, PRN
     Dates: start: 20031119
  12. NEURONTIN [Concomitant]
     Indication: NEURALGIA
     Route: 048
     Dates: start: 20020730
  13. ESGIC-PLUS [Concomitant]
     Dosage: ONE TAB PO BID, PRN
     Dates: start: 20020730
  14. REMERON [Concomitant]
     Dates: start: 20020221
  15. SERZONE [Concomitant]
     Dates: start: 20020221
  16. CLARITIN [Concomitant]
     Indication: UPPER RESPIRATORY TRACT INFECTION
     Dates: start: 20020221
  17. LEVAQUIN [Concomitant]
     Indication: SINUS DISORDER
     Dates: start: 20020221
  18. LEVAQUIN [Concomitant]
     Indication: UPPER RESPIRATORY TRACT INFECTION
     Dates: start: 20020221

REACTIONS (3)
  - DIABETES MELLITUS [None]
  - OBESITY [None]
  - TYPE 2 DIABETES MELLITUS [None]
